FAERS Safety Report 5275720-X (Version None)
Quarter: 2007Q1

REPORT INFORMATION
  Report Type: 
  Country: None (occurrence: None)
  Receive Date: 20061213
  Receipt Date: 20040316
  Transmission Date: 20070707
  Serious: Yes (Hospitalization)
  Sender: FDA-Public Use
  Company Number: 2004UW05017

PATIENT
  Sex: Female

DRUGS (2)
  1. SEROQUEL [Suspect]
     Dosage: 200 MG DAILY PO
     Route: 048
  2. SEROQUEL [Suspect]
     Dosage: 100 MG DAILY PO
     Route: 048
     Dates: start: 20040201, end: 20040315

REACTIONS (2)
  - SOMNOLENCE [None]
  - THROMBOPHLEBITIS [None]
